FAERS Safety Report 7897247-9 (Version None)
Quarter: 2011Q4

REPORT INFORMATION
  Report Type: 
  Country: None (occurrence: None)
  Receive Date: 20111107
  Receipt Date: 20111026
  Transmission Date: 20120403
  Serious: Yes (Other)
  Sender: FDA-Public Use
  Company Number: US-CELGENEUS-163-20785-11110021

PATIENT
  Sex: Male
  Weight: 103.97 kg

DRUGS (6)
  1. IMMUNE GLOBULIN INTRAVENOUS (HUMAN) [Concomitant]
     Route: 065
     Dates: start: 20070426, end: 20070401
  2. IMMUNE GLOBULIN INTRAVENOUS (HUMAN) [Concomitant]
     Route: 065
     Dates: start: 20070901, end: 20081201
  3. MELPHALAN HYDROCHLORIDE [Concomitant]
     Indication: MULTIPLE MYELOMA
     Route: 065
     Dates: start: 20070426, end: 20071001
  4. DEXAMETHASONE [Concomitant]
     Indication: MULTIPLE MYELOMA
     Route: 065
     Dates: start: 20061001, end: 20070801
  5. IMMUNE GLOBULIN INTRAVENOUS (HUMAN) [Concomitant]
     Route: 065
     Dates: start: 20091112, end: 20100215
  6. THALOMID [Suspect]
     Indication: MULTIPLE MYELOMA
     Dosage: 100 MILLIGRAM
     Route: 048
     Dates: start: 20061001, end: 20071001

REACTIONS (2)
  - DIVERTICULAR PERFORATION [None]
  - SINUS DISORDER [None]
